FAERS Safety Report 7625880-8 (Version None)
Quarter: 2011Q3

REPORT INFORMATION
  Report Type: 
  Country: None (occurrence: None)
  Receive Date: 20110720
  Receipt Date: 20110720
  Transmission Date: 20111222
  Serious: Yes (Death, Hospitalization)
  Sender: FDA-Public Use
  Company Number: None

PATIENT

DRUGS (1)
  1. TRIAD MANUFACTURING PRODUCTS: WIPES, LUBRIATING JELLY, TUBING [Suspect]

REACTIONS (6)
  - HEPATIC FAILURE [None]
  - RENAL FAILURE [None]
  - BLOOD PRESSURE DECREASED [None]
  - ORGAN FAILURE [None]
  - PRODUCT QUALITY ISSUE [None]
  - SEPSIS [None]
